FAERS Safety Report 5263813-2 (Version None)
Quarter: 2007Q1

REPORT INFORMATION
  Report Type: 
  Country: None (occurrence: None)
  Receive Date: 20070313
  Receipt Date: 20070309
  Transmission Date: 20070707
  Serious: Yes (Disabling, Other)
  Sender: FDA-Public Use
  Company Number: US-GLAXOSMITHKLINE-A0642613A

PATIENT
  Sex: Male

DRUGS (4)
  1. AVANDARYL [Suspect]
     Dosage: 1TAB PER DAY
     Route: 048
     Dates: start: 20070302, end: 20070309
  2. VITAMINS [Concomitant]
  3. IBUPROFEN [Concomitant]
  4. ALLEGRA [Concomitant]

REACTIONS (1)
  - BLINDNESS [None]
